FAERS Safety Report 9266856 (Version 1)
Quarter: 2013Q2

REPORT INFORMATION
  Report Type: Report from Study
  Country: GB (occurrence: GB)
  Receive Date: 20130501
  Receipt Date: 20130501
  Transmission Date: 20140414
  Serious: Yes (Hospitalization)
  Sender: FDA-Public Use
  Company Number: GB-BRACCO-000710

PATIENT
  Sex: 0

DRUGS (1)
  1. BARIUM SULFATE [Suspect]
     Indication: X-RAY
     Route: 054

REACTIONS (1)
  - Circulatory collapse [Unknown]
